FAERS Safety Report 7510993-1 (Version None)
Quarter: 2011Q2

REPORT INFORMATION
  Report Type: 
  Country: None (occurrence: None)
  Receive Date: 20110531
  Receipt Date: 20110525
  Transmission Date: 20111010
  Serious: No
  Sender: FDA-Public Use
  Company Number: US-PFIZER INC-2011113665

PATIENT
  Sex: Female
  Weight: 55.329 kg

DRUGS (2)
  1. CALAN [Suspect]
     Indication: HYPERTENSION
     Dosage: 240 MG, 2X/DAY
     Route: 048
  2. CALAN [Suspect]
     Dosage: 180 MG, 2X/DAY
     Route: 048
     Dates: start: 20110522

REACTIONS (4)
  - FEELING DRUNK [None]
  - NERVOUS SYSTEM DISORDER [None]
  - HYPOTENSION [None]
  - DIZZINESS [None]
